FAERS Safety Report 5382110-8 (Version None)
Quarter: 2007Q3

REPORT INFORMATION
  Report Type: 
  Country: None (occurrence: None)
  Receive Date: 20070709
  Receipt Date: 20070628
  Transmission Date: 20080115
  Serious: Yes (Other)
  Sender: FDA-Public Use
  Company Number: US-ROCHE-493719

PATIENT
  Age: 18 Year
  Sex: Male
  Weight: 113.4 kg

DRUGS (7)
  1. ACCUTANE [Suspect]
     Dosage: DOSAGE REGIMEN REPORTED AS VARIABLE.
     Route: 048
     Dates: start: 19961001, end: 19970415
  2. ACCUTANE [Suspect]
     Route: 048
     Dates: start: 20000922, end: 20010309
  3. KEFLEX [Concomitant]
     Dates: start: 20000925
  4. ALLEGRA [Concomitant]
     Dates: start: 20000925
  5. ACLOVATE [Concomitant]
     Dosage: DOSAGE REGIMEN REPORTED AS QD.
     Route: 061
     Dates: start: 19961221
  6. DIPROLEN [Concomitant]
     Dosage: TRADE NAME REPORTED AS DIPROLINE.
     Route: 061
     Dates: start: 20001121
  7. LIDEX [Concomitant]
     Dates: start: 20001221

REACTIONS (9)
  - CHAPPED LIPS [None]
  - CHEILITIS [None]
  - COLITIS [None]
  - COLITIS ULCERATIVE [None]
  - DRY SKIN [None]
  - INFLAMMATORY BOWEL DISEASE [None]
  - LIP DRY [None]
  - NASAL DRYNESS [None]
  - WOLFF-PARKINSON-WHITE SYNDROME [None]
